FAERS Safety Report 22226100 (Version 1)
Quarter: 2023Q2

REPORT INFORMATION
  Report Type: Spontaneous
  Country: DE (occurrence: DE)
  Receive Date: 20230419
  Receipt Date: 20230419
  Transmission Date: 20230722
  Serious: Yes (Other)
  Sender: FDA-Public Use
  Company Number: DE-STRIDES ARCOLAB LIMITED-2023SP005546

PATIENT

DRUGS (12)
  1. DEXAMETHASONE [Suspect]
     Active Substance: DEXAMETHASONE
     Indication: Plasma cell myeloma refractory
     Dosage: UNK
     Route: 065
  2. DEXAMETHASONE [Suspect]
     Active Substance: DEXAMETHASONE
     Dosage: 40 MILLIGRAM,CYCLICAL, AS A PART OF KRD-PACE REGIMEN
     Route: 048
  3. CISPLATIN [Suspect]
     Active Substance: CISPLATIN
     Indication: Plasma cell myeloma refractory
     Dosage: 10 MILLIGRAM/SQ. METER/DAY, CYCLICAL, AS A PART OF KRD-PACE REGIMEN; CONTINUOUS IV INFUSIONS FROM DA
     Route: 042
  4. DOXORUBICIN [Suspect]
     Active Substance: DOXORUBICIN
     Indication: Plasma cell myeloma refractory
     Dosage: 10 MILLIGRAM/SQ. METER/DAY, CYCLICAL, AS A PART OF KRD-PACE REGIMEN; CONTINUOUS IV INFUSIONS FROM DA
     Route: 042
  5. ETOPOSIDE [Suspect]
     Active Substance: ETOPOSIDE
     Indication: Plasma cell myeloma refractory
     Dosage: 40 MILLIGRAM/SQ. METER/DAY, CYCLICAL, AS A PART OF KRD-PACE REGIMEN; CONTINUOUS IV INFUSIONS FROM DA
     Route: 042
  6. DARATUMUMAB [Suspect]
     Active Substance: DARATUMUMAB
     Indication: Plasma cell myeloma refractory
     Dosage: UNK
     Route: 065
  7. BORTEZOMIB [Suspect]
     Active Substance: BORTEZOMIB
     Indication: Plasma cell myeloma refractory
     Dosage: UNK
     Route: 065
  8. THALIDOMIDE [Suspect]
     Active Substance: THALIDOMIDE
     Indication: Plasma cell myeloma refractory
     Dosage: UNK
     Route: 065
  9. CARFILZOMIB [Suspect]
     Active Substance: CARFILZOMIB
     Indication: Plasma cell myeloma refractory
     Dosage: UNK, CYCLICAL, AS A PART OF KRD-PACE REGIMEN
     Route: 065
  10. LENALIDOMIDE [Suspect]
     Active Substance: LENALIDOMIDE
     Indication: Plasma cell myeloma refractory
     Dosage: UNK, CYCLICAL, AS A PART OF KRD-PACE REGIMEN
     Route: 065
  11. CYCLOPHOSPHAMIDE [Suspect]
     Active Substance: CYCLOPHOSPHAMIDE
     Indication: Plasma cell myeloma refractory
     Dosage: 400 MILLIGRAM/SQ. METER/DAY, CYCLICAL, AS A PART OF KRD-PACE REGIMEN; CONTINUOUS IV INFUSIONS FROM D
     Route: 042
  12. MELPHALAN [Suspect]
     Active Substance: MELPHALAN
     Indication: Plasma cell myeloma refractory
     Dosage: UNK
     Route: 065

REACTIONS (6)
  - Febrile neutropenia [Unknown]
  - Thrombocytopenia [Unknown]
  - Drug ineffective [Unknown]
  - Mucosal inflammation [Unknown]
  - Lymphopenia [Unknown]
  - Off label use [Unknown]
